FAERS Safety Report 8511018-1 (Version None)
Quarter: 2012Q3

REPORT INFORMATION
  Report Type: 
  Country: None (occurrence: None)
  Receive Date: 20120706
  Receipt Date: 20120622
  Transmission Date: 20120928
  Serious: Yes (Hospitalization)
  Sender: FDA-Public Use
  Company Number: UTC-019985

PATIENT
  Age: 52 Year
  Sex: Female

DRUGS (1)
  1. TYVASO [Suspect]
     Dosage: (36 MCG),INHALATION
     Route: 055
     Dates: start: 20120523

REACTIONS (1)
  - CARDIAC FAILURE CONGESTIVE [None]
